FAERS Safety Report 21761490 (Version 1)
Quarter: 2022Q4

REPORT INFORMATION
  Report Type: Spontaneous
  Country: CN (occurrence: None)
  Receive Date: 20221221
  Receipt Date: 20221221
  Transmission Date: 20230112
  Serious: Yes (Other)
  Sender: FDA-Public Use
  Company Number: CN-ROCHE-3246018

PATIENT
  Sex: Female
  Weight: 53 kg

DRUGS (6)
  1. CARBOPLATIN [Suspect]
     Active Substance: CARBOPLATIN
     Indication: Ovarian cancer
     Dosage: ON AN UNSPECIFIED DATE THE PATIENT STARTED TREATMENT WITH CARBOPLATIN
     Route: 065
  2. CARBOPLATIN [Suspect]
     Active Substance: CARBOPLATIN
     Route: 041
     Dates: start: 20221201, end: 20221201
  3. PACLITAXEL [Suspect]
     Active Substance: PACLITAXEL
     Indication: Ovarian cancer
     Route: 041
     Dates: start: 20221130, end: 20221130
  4. AVASTIN [Suspect]
     Active Substance: BEVACIZUMAB
     Indication: Ovarian cancer
     Dosage: ON AN UNSPECIFIED DATE THE PATIENT STARTED TREATMENT WITH BEVACIZUMAB
     Route: 065
  5. AVASTIN [Suspect]
     Active Substance: BEVACIZUMAB
     Route: 041
     Dates: start: 20221130, end: 20221130
  6. PACLITAXEL [Concomitant]
     Active Substance: PACLITAXEL
     Indication: Ovarian cancer
     Dosage: ON AN UNSPECIFIED DATE THE PATIENT STARTED TREATMENT WITH PACLITAXEL.
     Route: 065

REACTIONS (4)
  - Myelosuppression [Recovered/Resolved]
  - Intestinal obstruction [Unknown]
  - Chest discomfort [Unknown]
  - Decreased appetite [Unknown]

NARRATIVE: CASE EVENT DATE: 20221205
